FAERS Safety Report 6117296-0 (Version None)
Quarter: 2009Q1

REPORT INFORMATION
  Report Type: 
  Country: None (occurrence: None)
  Receive Date: 20090314
  Receipt Date: 20090113
  Transmission Date: 20090719
  Serious: No
  Sender: FDA-Public Use
  Company Number: US-ABBOTT-09P-163-0497552-00

PATIENT
  Sex: Female
  Weight: 45.854 kg

DRUGS (3)
  1. HUMIRA [Suspect]
     Indication: PSORIASIS
     Route: 058
     Dates: start: 20030101
  2. HUMIRA [Suspect]
     Indication: ARTHRALGIA
  3. BONIVA [Concomitant]
     Indication: OSTEOPOROSIS

REACTIONS (4)
  - ARTHRALGIA [None]
  - MUSCULOSKELETAL PAIN [None]
  - OEDEMA PERIPHERAL [None]
  - PSORIASIS [None]
